FAERS Safety Report 18513486 (Version 3)
Quarter: 2021Q2

REPORT INFORMATION
  Report Type: Spontaneous
  Country: US (occurrence: US)
  Receive Date: 20201117
  Receipt Date: 20210422
  Transmission Date: 20210717
  Serious: Yes (Other)
  Sender: FDA-Public Use
  Company Number: US-INTERNATIONAL MEDICATION SYSTEMS, LIMITED-2096035

PATIENT
  Age: 72 Year
  Sex: Female
  Weight: 51.8 kg

DRUGS (2)
  1. LARYNG?O?JET INJECTOR [Suspect]
     Active Substance: DEVICE
  2. LIDOCAINE HYDROCHLORIDE. [Suspect]
     Active Substance: LIDOCAINE HYDROCHLORIDE
     Indication: AIRWAY PATENCY DEVICE INSERTION
     Route: 061
     Dates: start: 20201014, end: 20201014

REACTIONS (5)
  - Spirometry abnormal [Unknown]
  - Wheezing [Unknown]
  - Dyspnoea [Recovered/Resolved]
  - Chest pain [Recovered/Resolved]
  - Foreign body in respiratory tract [Recovered/Resolved]

NARRATIVE: CASE EVENT DATE: 20201014
